FAERS Safety Report 25345998 (Version 3)
Quarter: 2025Q4

REPORT INFORMATION
  Report Type: Spontaneous
  Country: US (occurrence: US)
  Receive Date: 20250522
  Receipt Date: 20251010
  Transmission Date: 20260117
  Serious: No
  Sender: GLAXOSMITHKLINE
  Company Number: US-GSK-US2025AMR058289

PATIENT
  Sex: Male

DRUGS (1)
  1. NUCALA [Suspect]
     Active Substance: MEPOLIZUMAB
     Indication: Asthma
     Dosage: 100 MG, Q4W, UNDER THE SKIN

REACTIONS (4)
  - Dyspnoea [Unknown]
  - Wheezing [Unknown]
  - Illness [Unknown]
  - Product dose omission issue [Unknown]
